FAERS Safety Report 10350472 (Version 2)
Quarter: 2014Q3

REPORT INFORMATION
  Report Type: Spontaneous
  Country: AU (occurrence: AU)
  Receive Date: 20140730
  Receipt Date: 20140822
  Transmission Date: 20150326
  Serious: Yes (Other)
  Sender: FDA-Public Use
  Company Number: AU-SA-2014SA098637

PATIENT
  Sex: Female

DRUGS (6)
  1. METFORMIN HYDROCHLORIDE. [Concomitant]
     Active Substance: METFORMIN HYDROCHLORIDE
  2. LANTUS [Suspect]
     Active Substance: INSULIN GLARGINE
     Indication: PRODUCT USED FOR UNKNOWN INDICATION
     Dosage: DOSE:44 UNIT(S)
     Route: 065
     Dates: start: 2011
  3. BRICANYL [Concomitant]
     Active Substance: TERBUTALINE SULFATE
  4. NOTEN [Concomitant]
     Active Substance: ATENOLOL
  5. MICARDIS [Concomitant]
     Active Substance: TELMISARTAN
  6. CYMBALTA [Concomitant]
     Active Substance: DULOXETINE HYDROCHLORIDE

REACTIONS (2)
  - Diabetes mellitus inadequate control [Unknown]
  - Bronchitis [Unknown]

NARRATIVE: CASE EVENT DATE: 2014
